FAERS Safety Report 18846636 (Version 3)
Quarter: 2021Q3

REPORT INFORMATION
  Report Type: Spontaneous
  Country: IN (occurrence: IN)
  Receive Date: 20210204
  Receipt Date: 20210810
  Transmission Date: 20211014
  Serious: Yes (Death, Other)
  Sender: FDA-Public Use
  Company Number: IN-PFIZER INC-2021099229

PATIENT
  Age: 60 Year
  Sex: Female

DRUGS (1)
  1. PALBACE [Suspect]
     Active Substance: PALBOCICLIB
     Indication: BREAST CANCER METASTATIC
     Dosage: 125 MG, 1X/DAY
     Route: 048
     Dates: start: 20200821

REACTIONS (6)
  - Paralysis [Unknown]
  - Haemorrhoids [Unknown]
  - Death [Fatal]
  - Haematochezia [Unknown]
  - Pain [Unknown]
  - Sensory loss [Unknown]

NARRATIVE: CASE EVENT DATE: 20210701
